FAERS Safety Report 10372291 (Version 2)
Quarter: 2014Q4

REPORT INFORMATION
  Report Type: Spontaneous
  Country: US (occurrence: US)
  Receive Date: 20140808
  Receipt Date: 20141205
  Transmission Date: 20150528
  Serious: No
  Sender: FDA-Public Use
  Company Number: US-BRISTOL-MYERS SQUIBB COMPANY-20810834

PATIENT
  Age: 56 Year
  Sex: Female

DRUGS (1)
  1. SPRYCEL [Suspect]
     Active Substance: DASATINIB
     Indication: CHRONIC MYELOID LEUKAEMIA
     Route: 048
     Dates: start: 20140415, end: 20140514

REACTIONS (10)
  - Chills [Unknown]
  - Eye pain [Unknown]
  - Conjunctivitis [Unknown]
  - Eye swelling [Recovering/Resolving]
  - Swelling [Unknown]
  - Pruritus [Recovering/Resolving]
  - Hot flush [Unknown]
  - Nausea [Unknown]
  - Decreased appetite [Unknown]
  - Rash [Unknown]
